FAERS Safety Report 8145897-7 (Version None)
Quarter: 2012Q1

REPORT INFORMATION
  Report Type: 
  Country: None (occurrence: None)
  Receive Date: 20120217
  Receipt Date: 20110713
  Transmission Date: 20120608
  Serious: No
  Sender: FDA-Public Use
  Company Number: US-ABBOTT-11P-163-0734264-00

PATIENT
  Sex: Male
  Weight: 63.56 kg

DRUGS (3)
  1. VITAMIN D [Concomitant]
     Indication: VITAMIN D DECREASED
  2. ASPIRIN [Concomitant]
     Indication: PROPHYLAXIS
  3. SIMCOR [Suspect]
     Indication: HIGH DENSITY LIPOPROTEIN INCREASED
     Dosage: 500/20 MG QHS
     Dates: start: 20110613

REACTIONS (4)
  - INITIAL INSOMNIA [None]
  - FLUSHING [None]
  - MYALGIA [None]
  - PARAESTHESIA [None]
